FAERS Safety Report 6588041-X (Version None)
Quarter: 2010Q1

REPORT INFORMATION
  Report Type: 
  Country: None (occurrence: None)
  Receive Date: 20100218
  Receipt Date: 20100201
  Transmission Date: 20100710
  Serious: Yes (Death, Hospitalization)
  Sender: FDA-Public Use
  Company Number: NL-MEDIMMUNE-MEDI-0010512

PATIENT
  Sex: Female
  Weight: 5.95 kg

DRUGS (2)
  1. SYNAGIS [Suspect]
     Route: 030
     Dates: start: 20091104, end: 20091104
  2. SYNAGIS [Suspect]
     Route: 030
     Dates: start: 20100127, end: 20100127

REACTIONS (1)
  - ADVERSE EVENT [None]
